FAERS Safety Report 8238903-2 (Version None)
Quarter: 2012Q1

REPORT INFORMATION
  Report Type: 
  Country: None (occurrence: None)
  Receive Date: 20120327
  Receipt Date: 20120312
  Transmission Date: 20120608
  Serious: Yes (Other)
  Sender: FDA-Public Use
  Company Number: CA-JUTA GMBH-2012-04952

PATIENT
  Age: 75 Year
  Sex: Male

DRUGS (1)
  1. CITALOPRAM HYDROBROMIDE [Suspect]
     Indication: SEXUALLY INAPPROPRIATE BEHAVIOUR
     Dosage: 10 MG, UNK
     Route: 065

REACTIONS (3)
  - SEXUALLY INAPPROPRIATE BEHAVIOUR [None]
  - DRUG INEFFECTIVE [None]
  - CONDITION AGGRAVATED [None]
